FAERS Safety Report 6595601-9 (Version None)
Quarter: 2010Q1

REPORT INFORMATION
  Report Type: 
  Country: None (occurrence: None)
  Receive Date: 20100223
  Receipt Date: 20100217
  Transmission Date: 20100710
  Serious: Yes (Disabling)
  Sender: FDA-Public Use
  Company Number: FR-KINGPHARMUSA00001-K201000174

PATIENT
  Age: 66 Year
  Weight: 80 kg

DRUGS (4)
  1. ALTACE [Suspect]
     Indication: HYPERTENSION
     Dosage: 1.25 MG, QD
     Route: 048
     Dates: start: 20091203, end: 20091211
  2. FLUTICASONE PROPIONATE [Concomitant]
     Indication: ASTHMA
  3. SALMETEROL [Concomitant]
     Indication: ASTHMA
  4. VENTOLIN [Concomitant]
     Indication: ASTHMA

REACTIONS (2)
  - BLISTER [None]
  - OEDEMA PERIPHERAL [None]
